FAERS Safety Report 19554216 (Version 1)
Quarter: 2021Q3

REPORT INFORMATION
  Report Type: Spontaneous
  Country: GB (occurrence: GB)
  Receive Date: 20210715
  Receipt Date: 20210715
  Transmission Date: 20211014
  Serious: Yes (Hospitalization)
  Sender: FDA-Public Use
  Company Number: GB-CHIESI-2021CHF03427

PATIENT
  Sex: Male

DRUGS (4)
  1. KALYDECO [Concomitant]
     Active Substance: IVACAFTOR
     Indication: PRODUCT USED FOR UNKNOWN INDICATION
     Dosage: UNK
  2. BRAMITOB [Suspect]
     Active Substance: TOBRAMYCIN
     Indication: CYSTIC FIBROSIS
     Dosage: 1 DOSAGE FORM, BID
     Route: 055
  3. QUINSAIR [Concomitant]
     Active Substance: LEVOFLOXACIN
     Indication: PRODUCT USED FOR UNKNOWN INDICATION
     Dosage: UNK
  4. KAFTRIO [Concomitant]
     Active Substance: ELEXACAFTOR\IVACAFTOR\TEZACAFTOR
     Indication: PRODUCT USED FOR UNKNOWN INDICATION
     Dosage: UNK

REACTIONS (1)
  - Ill-defined disorder [Unknown]
